FAERS Safety Report 4515023-1 (Version None)
Quarter: 2004Q4

REPORT INFORMATION
  Report Type: 
  Country: None (occurrence: None)
  Receive Date: 20041129
  Receipt Date: 20041129
  Transmission Date: 20050328
  Serious: Yes (Other)
  Sender: FDA-Public Use
  Company Number: None

PATIENT
  Age: 26 Year
  Sex: Female
  Weight: 113.3993 kg

DRUGS (2)
  1. PAXIL CR [Suspect]
     Indication: ANXIETY
     Dosage: 1 TABLET  ONCE DAILY  ORAL
     Route: 048
     Dates: start: 20030401, end: 20041128
  2. PAXIL CR [Suspect]
     Indication: DEPRESSION
     Dosage: 1 TABLET  ONCE DAILY  ORAL
     Route: 048
     Dates: start: 20030401, end: 20041128

REACTIONS (7)
  - ACTIVITIES OF DAILY LIVING IMPAIRED [None]
  - DIZZINESS [None]
  - HYPOAESTHESIA [None]
  - PARAESTHESIA [None]
  - PHOTOPHOBIA [None]
  - TINNITUS [None]
  - VISION BLURRED [None]
